FAERS Safety Report 19910100 (Version 1)
Quarter: 2021Q4

REPORT INFORMATION
  Report Type: Spontaneous
  Country: US (occurrence: US)
  Receive Date: 20211003
  Receipt Date: 20211003
  Transmission Date: 20220303
  Serious: No
  Sender: FDA-Public Use
  Company Number: 2021A748143

PATIENT
  Age: 25140 Day
  Sex: Male
  Weight: 88.5 kg

DRUGS (1)
  1. BUDESONIDE\FORMOTEROL\GLYCOPYRRONIUM [Suspect]
     Active Substance: BUDESONIDE\FORMOTEROL\GLYCOPYRRONIUM
     Indication: Chronic obstructive pulmonary disease
     Dosage: 160MCG/9MCG/4.8MCG 2 PUFFS ONCE DAILY IN THE MORNING
     Route: 055

REACTIONS (3)
  - Cough [Unknown]
  - Product dose omission issue [Not Recovered/Not Resolved]
  - Product use issue [Unknown]

NARRATIVE: CASE EVENT DATE: 20210912
